FAERS Safety Report 10013046 (Version 1)
Quarter: 2014Q1

REPORT INFORMATION
  Report Type: Spontaneous
  Country: US (occurrence: US)
  Receive Date: 20140314
  Receipt Date: 20140314
  Transmission Date: 20141002
  Serious: No
  Sender: FDA-Public Use
  Company Number: US-PFIZER INC-2014071851

PATIENT
  Age: 60 Year
  Sex: Female
  Weight: 69.84 kg

DRUGS (3)
  1. EFFEXOR XR [Suspect]
     Indication: MENOPAUSAL SYMPTOMS
     Dosage: 75 MG, DAILY
     Dates: start: 201308, end: 201403
  2. EFFEXOR XR [Suspect]
     Indication: HOT FLUSH
  3. METFORMIN [Concomitant]
     Indication: DIABETES MELLITUS
     Dosage: 500 MG, 2X/DAY

REACTIONS (2)
  - Product quality issue [Recovered/Resolved]
  - Heart rate increased [Recovered/Resolved]
